FAERS Safety Report 21251042 (Version 8)
Quarter: 2022Q4

REPORT INFORMATION
  Report Type: Report from Study
  Country: CZ (occurrence: CZ)
  Receive Date: 20220824
  Receipt Date: 20221013
  Transmission Date: 20230113
  Serious: Yes (Hospitalization, Other)
  Sender: FDA-Public Use
  Company Number: CZ-BRISTOL-MYERS SQUIBB COMPANY-2022-092341

PATIENT
  Age: 32 Year
  Sex: Female
  Weight: 103 kg

DRUGS (10)
  1. MISTRA [Concomitant]
     Indication: Product used for unknown indication
     Route: 048
     Dates: start: 20220403
  2. METOCLOPRAMIDE HYDROCHLORIDE [Concomitant]
     Active Substance: METOCLOPRAMIDE HYDROCHLORIDE
     Indication: Prophylaxis
     Dosage: 1 DOSAGE FORM= 2 UNITS NOS
     Route: 048
     Dates: start: 20220505, end: 20220902
  3. IBUPROFEN [Concomitant]
     Active Substance: IBUPROFEN
     Indication: Product used for unknown indication
     Route: 048
     Dates: start: 20220516
  4. EUTHYROX [Concomitant]
     Active Substance: LEVOTHYROXINE SODIUM
     Indication: Hypothyroidism
     Route: 048
     Dates: start: 20220617
  5. PANTOPRAZOLE SODIUM [Concomitant]
     Active Substance: PANTOPRAZOLE SODIUM
     Indication: Prophylaxis
     Dosage: ONGOING
     Route: 048
     Dates: start: 20220816
  6. NADROPARIN CALCIUM [Concomitant]
     Active Substance: NADROPARIN CALCIUM
     Indication: Prophylaxis
     Dosage: ONGOING
     Route: 058
     Dates: start: 20220816
  7. PREDNISONE [Concomitant]
     Active Substance: PREDNISONE
     Indication: Aspartate aminotransferase increased
     Route: 048
     Dates: start: 20220803, end: 20220809
  8. PREDNISONE [Concomitant]
     Active Substance: PREDNISONE
     Indication: Alanine aminotransferase increased
     Route: 048
     Dates: start: 20220810, end: 20220816
  9. BISULEPIN [Concomitant]
     Active Substance: BISULEPIN
     Indication: Prophylaxis
     Route: 048
     Dates: start: 20220803, end: 20220810
  10. BISULEPIN [Concomitant]
     Active Substance: BISULEPIN
     Route: 048
     Dates: start: 20220811, end: 20220816

REACTIONS (2)
  - Polyserositis [Recovered/Resolved]
  - Diarrhoea [Recovered/Resolved]

NARRATIVE: CASE EVENT DATE: 20220815
